FAERS Safety Report 14589655 (Version 1)
Quarter: 2018Q1

REPORT INFORMATION
  Report Type: Spontaneous
  Country: US (occurrence: US)
  Receive Date: 20180302
  Receipt Date: 20180302
  Transmission Date: 20180509
  Serious: No
  Sender: FDA-Public Use
  Company Number: US-JNJFOC-20180226025

PATIENT
  Age: 64 Year
  Sex: Male

DRUGS (6)
  1. IMBRUVICA [Suspect]
     Active Substance: IBRUTINIB
     Indication: B-CELL LYMPHOMA
     Route: 048
     Dates: start: 20171109, end: 201802
  2. LISINOPRIL. [Concomitant]
     Active Substance: LISINOPRIL
  3. CENTRUM MEN [Concomitant]
  4. ALLOPURINOL. [Concomitant]
     Active Substance: ALLOPURINOL
  5. CARVEDILOL. [Concomitant]
     Active Substance: CARVEDILOL
  6. FUROSEMIDE. [Concomitant]
     Active Substance: FUROSEMIDE

REACTIONS (3)
  - Drug ineffective for unapproved indication [Unknown]
  - Off label use [Unknown]
  - Product use in unapproved indication [Unknown]

NARRATIVE: CASE EVENT DATE: 20171109
